FAERS Safety Report 21093703 (Version 2)
Quarter: 2022Q3

REPORT INFORMATION
  Report Type: Report from Study
  Country: BR (occurrence: BR)
  Receive Date: 20220718
  Receipt Date: 20220722
  Transmission Date: 20221026
  Serious: No
  Sender: FDA-Public Use
  Company Number: BR-NOVARTISPH-NVSC2022BR161826

PATIENT
  Sex: Female

DRUGS (2)
  1. KISQALI [Suspect]
     Active Substance: RIBOCICLIB
     Indication: Benign breast neoplasm
     Dosage: UNK
     Route: 065
     Dates: start: 20220515
  2. KISQALI [Suspect]
     Active Substance: RIBOCICLIB
     Dosage: UNK (ABOUT 2 MONTHS AGO)
     Route: 065

REACTIONS (6)
  - Feeding disorder [Recovered/Resolved]
  - Weight decreased [Recovered/Resolved]
  - Diarrhoea [Recovered/Resolved]
  - Nausea [Recovered/Resolved]
  - Vomiting [Recovered/Resolved]
  - Skin disorder [Recovering/Resolving]
